FAERS Safety Report 5240785-8 (Version None)
Quarter: 2007Q1

REPORT INFORMATION
  Report Type: 
  Country: None (occurrence: None)
  Receive Date: 20061208
  Receipt Date: 20050804
  Transmission Date: 20070707
  Serious: Yes (Other)
  Sender: FDA-Public Use
  Company Number: 2005UW11538

PATIENT
  Age: 67 Year
  Sex: Female
  Weight: 103.41 kg

DRUGS (9)
  1. CRESTOR [Suspect]
     Indication: BLOOD CHOLESTEROL INCREASED
     Dates: start: 20050803
  2. CRESTOR [Suspect]
     Indication: BLOOD TRIGLYCERIDES INCREASED
     Dates: start: 20050803
  3. ADVAIR DISKUS 100/50 [Concomitant]
  4. BENICAR [Concomitant]
  5. FUROSEMIDE [Concomitant]
  6. POTASSIIUM [Concomitant]
  7. SINGULAIR [Concomitant]
  8. FLONASE [Concomitant]
  9. PREVACID [Concomitant]

REACTIONS (2)
  - FEELING ABNORMAL [None]
  - INSOMNIA [None]
